FAERS Safety Report 6420461-6 (Version None)
Quarter: 2009Q4

REPORT INFORMATION
  Report Type: 
  Country: None (occurrence: None)
  Receive Date: 20091029
  Receipt Date: 20091019
  Transmission Date: 20100525
  Serious: Yes (Hospitalization, Other)
  Sender: FDA-Public Use
  Company Number: FR-BAXTER-2009BH016430

PATIENT
  Age: 56 Year
  Sex: Female

DRUGS (7)
  1. EXTRANEAL [Suspect]
     Indication: PERITONEAL DIALYSIS
     Route: 033
     Dates: start: 20021101, end: 20060801
  2. NUTRINEAL [Suspect]
     Indication: PERITONEAL DIALYSIS
     Route: 033
     Dates: start: 20021101, end: 20060801
  3. PHYSIOSOL IN PLASTIC CONTAINER [Suspect]
     Indication: PERITONEAL DIALYSIS
     Route: 033
     Dates: start: 20021101, end: 20060801
  4. SOLUPRED [Concomitant]
     Indication: PROPHYLAXIS AGAINST TRANSPLANT REJECTION
     Route: 065
     Dates: start: 20090605
  5. CELLCEPT [Concomitant]
     Indication: PROPHYLAXIS AGAINST TRANSPLANT REJECTION
     Route: 065
     Dates: start: 20090605
  6. NEORAL [Concomitant]
     Indication: PROPHYLAXIS AGAINST TRANSPLANT REJECTION
     Route: 065
     Dates: start: 20090605
  7. INTERFERON ALFA [Concomitant]
     Indication: HEPATITIS C
     Route: 065
     Dates: start: 20070201, end: 20070601

REACTIONS (9)
  - DYSPEPSIA [None]
  - FISTULA [None]
  - HAEMORRHAGIC ASCITES [None]
  - INTESTINAL OBSTRUCTION [None]
  - LARGE INTESTINAL OBSTRUCTION [None]
  - PERITONEAL DISORDER [None]
  - PERITONITIS BACTERIAL [None]
  - PERITONITIS SCLEROSING [None]
  - PYREXIA [None]
